FAERS Safety Report 18468334 (Version 2)
Quarter: 2025Q1

REPORT INFORMATION
  Report Type: Report from Study
  Country: IN (occurrence: IN)
  Receive Date: 20201105
  Receipt Date: 20250121
  Transmission Date: 20250409
  Serious: Yes (Death, Other)
  Sender: NOVARTIS
  Company Number: IN-NOVARTISPH-PHHY2015IN137582

PATIENT
  Age: 60 Year
  Sex: Female

DRUGS (1)
  1. GLIVEC [Suspect]
     Active Substance: IMATINIB MESYLATE
     Indication: Chronic myeloid leukaemia
     Route: 065

REACTIONS (8)
  - Death [Fatal]
  - Barrett^s oesophagus [Unknown]
  - Obstruction gastric [Unknown]
  - Duodenal ulcer [Unknown]
  - Cataract [Unknown]
  - Hiatus hernia [Unknown]
  - Decreased appetite [Unknown]
  - Weight decreased [Unknown]

NARRATIVE: CASE EVENT DATE: 20200208
